FAERS Safety Report 20591160 (Version 1)
Quarter: 2022Q1

REPORT INFORMATION
  Report Type: Spontaneous
  Country: US (occurrence: US)
  Receive Date: 20220314
  Receipt Date: 20220314
  Transmission Date: 20220423
  Serious: No
  Sender: FDA-Public Use
  Company Number: US-GALDERMA-US2021017718

PATIENT

DRUGS (6)
  1. TRI-LUMA [Suspect]
     Active Substance: FLUOCINOLONE ACETONIDE\HYDROQUINONE\TRETINOIN
     Indication: Skin hyperpigmentation
     Dosage: 1 DOSAGE FORM, QD
     Route: 061
     Dates: start: 20211004, end: 20211015
  2. Glow skin mineral SPF 50 [Concomitant]
     Indication: Prophylaxis
     Route: 061
  3. Acure seriously soothing cleanser [Concomitant]
     Indication: Therapeutic skin care topical
  4. METOPROLOL [Concomitant]
     Active Substance: METOPROLOL
     Indication: Hypertension
  5. VALSARTAN [Concomitant]
     Active Substance: VALSARTAN
     Indication: Hypertension
  6. AMLODIPINE [Concomitant]
     Active Substance: AMLODIPINE BESYLATE
     Indication: Hypertension

REACTIONS (3)
  - Rash [Not Recovered/Not Resolved]
  - Skin irritation [Unknown]
  - Intentional product use issue [Recovered/Resolved]

NARRATIVE: CASE EVENT DATE: 20211001
